FAERS Safety Report 6587983-9 (Version None)
Quarter: 2010Q1

REPORT INFORMATION
  Report Type: 
  Country: None (occurrence: None)
  Receive Date: 20100217
  Receipt Date: 20100217
  Transmission Date: 20100710
  Serious: Yes (Other)
  Sender: FDA-Public Use
  Company Number: None

PATIENT
  Age: 25 Year
  Sex: Male
  Weight: 83.9154 kg

DRUGS (1)
  1. PROPECIA [Suspect]
     Dosage: 1 A DAY

REACTIONS (4)
  - EMOTIONAL DISORDER [None]
  - ERECTILE DYSFUNCTION [None]
  - FEELING ABNORMAL [None]
  - LOSS OF LIBIDO [None]
